FAERS Safety Report 6045738-8 (Version None)
Quarter: 2009Q1

REPORT INFORMATION
  Report Type: 
  Country: None (occurrence: None)
  Receive Date: 20090121
  Receipt Date: 20090115
  Transmission Date: 20090719
  Serious: Yes (Other)
  Sender: FDA-Public Use
  Company Number: US-PURDUE-USA_2009_0036562

PATIENT
  Sex: Female

DRUGS (1)
  1. OXYCONTIN [Suspect]
     Indication: DRUG EXPOSURE BEFORE PREGNANCY
     Route: 065
     Dates: start: 19990101

REACTIONS (2)
  - DRUG DEPENDENCE [None]
  - DRUG EXPOSURE BEFORE PREGNANCY [None]
